FAERS Safety Report 7951808-7 (Version None)
Quarter: 2011Q4

REPORT INFORMATION
  Report Type: 
  Country: None (occurrence: None)
  Receive Date: 20111130
  Receipt Date: 20111130
  Transmission Date: 20120403
  Serious: Yes (Death)
  Sender: FDA-Public Use
  Company Number: None

PATIENT
  Age: 62 Year
  Sex: Female
  Weight: 113 kg

DRUGS (2)
  1. CARBOPLATIN [Suspect]
     Indication: FALLOPIAN TUBE CANCER
     Dosage: AUC 5/175 MG/M2
     Dates: start: 20111116, end: 20111116
  2. RIDAFOROLIMUS [Suspect]
     Indication: FALLOPIAN TUBE CANCER
     Dosage: 10 MG PO
     Route: 048
     Dates: start: 20111117, end: 20111120

REACTIONS (22)
  - RESPIRATORY ACIDOSIS [None]
  - VENTRICULAR HYPOKINESIA [None]
  - ABDOMINAL PAIN [None]
  - INADEQUATE ANALGESIA [None]
  - HAEMATURIA [None]
  - HYPOTENSION [None]
  - BLOOD CREATININE INCREASED [None]
  - FLATULENCE [None]
  - CHILLS [None]
  - DYSPNOEA [None]
  - LUNG CONSOLIDATION [None]
  - VENTRICULAR ARRHYTHMIA [None]
  - PYREXIA [None]
  - BLOOD PRESSURE INCREASED [None]
  - OXYGEN SATURATION DECREASED [None]
  - TACHYCARDIA [None]
  - EJECTION FRACTION DECREASED [None]
  - RIGHT VENTRICULAR DYSFUNCTION [None]
  - FREQUENT BOWEL MOVEMENTS [None]
  - RESPIRATORY RATE INCREASED [None]
  - PLEURAL EFFUSION [None]
  - GENERAL PHYSICAL HEALTH DETERIORATION [None]
